FAERS Safety Report 4994108-X (Version None)
Quarter: 2006Q2

REPORT INFORMATION
  Report Type: 
  Country: None (occurrence: None)
  Receive Date: 20060503
  Receipt Date: 20060419
  Transmission Date: 20061013
  Serious: Yes (Hospitalization)
  Sender: FDA-Public Use
  Company Number: 2006JP001166

PATIENT
  Age: 74 Year
  Sex: Female

DRUGS (1)
  1. PROGRAF [Suspect]
     Indication: RHEUMATOID ARTHRITIS
     Dosage: 1 MG, ORAL
     Route: 048
     Dates: start: 20060316, end: 20060413

REACTIONS (4)
  - ABASIA [None]
  - ASTHENIA [None]
  - BLOOD CREATINE PHOSPHOKINASE MB INCREASED [None]
  - MUSCLE DISORDER [None]
